FAERS Safety Report 7078451-9 (Version None)
Quarter: 2010Q4

REPORT INFORMATION
  Report Type: 
  Country: None (occurrence: None)
  Receive Date: 20101101
  Receipt Date: 20101101
  Transmission Date: 20110411
  Serious: No
  Sender: FDA-Public Use
  Company Number: None

PATIENT
  Age: 59 Year
  Sex: Male
  Weight: 90.7194 kg

DRUGS (1)
  1. FENTANYL-100 [Suspect]
     Indication: SPINAL OSTEOARTHRITIS
     Dosage: ONE PATCH EVERY 72 HOURS TRANSDERMAL
     Route: 062
     Dates: start: 20070301, end: 20101029

REACTIONS (3)
  - DRUG EFFECT DECREASED [None]
  - PRODUCT ADHESION ISSUE [None]
  - PRODUCT SUBSTITUTION ISSUE [None]
